FAERS Safety Report 4662094-8 (Version None)
Quarter: 2005Q2

REPORT INFORMATION
  Report Type: 
  Country: None (occurrence: None)
  Receive Date: 20050512
  Receipt Date: 20050426
  Transmission Date: 20051028
  Serious: Yes (Hospitalization, Other)
  Sender: FDA-Public Use
  Company Number: USA050496651

PATIENT
  Age: 45 Year
  Sex: Male

DRUGS (3)
  1. HUMALOG [Suspect]
     Indication: DIABETES MELLITUS
     Dates: start: 20020101
  2. INSULIN [Suspect]
     Indication: DIABETES MELLITUS
     Dates: start: 19640101, end: 20040301
  3. LANTUS [Concomitant]

REACTIONS (13)
  - BLOOD CREATININE INCREASED [None]
  - CARDIAC DISORDER [None]
  - COMPLICATIONS OF TRANSPLANT SURGERY [None]
  - DIABETES MELLITUS INADEQUATE CONTROL [None]
  - DIALYSIS [None]
  - ERECTILE DYSFUNCTION [None]
  - PRECANCEROUS CELLS PRESENT [None]
  - RENAL DISORDER [None]
  - RENAL TRANSPLANT [None]
  - SURGICAL PROCEDURE REPEATED [None]
  - TREATMENT NONCOMPLIANCE [None]
  - VISUAL DISTURBANCE [None]
  - VITREOUS DISORDER [None]
